FAERS Safety Report 17815007 (Version 2)
Quarter: 2020Q2

REPORT INFORMATION
  Report Type: Report from Study
  Country: KR (occurrence: KR)
  Receive Date: 20200522
  Receipt Date: 20200603
  Transmission Date: 20200714
  Serious: Yes (Other)
  Sender: FDA-Public Use
  Company Number: KR-ROCHE-2602025

PATIENT
  Age: 58 Year
  Sex: Female
  Weight: 64 kg

DRUGS (7)
  1. MORPHINE [Concomitant]
     Active Substance: MORPHINE
     Route: 042
     Dates: start: 20200428, end: 20200428
  2. ATEZOLIZUMAB. [Suspect]
     Active Substance: ATEZOLIZUMAB
     Indication: HER2 POSITIVE BREAST CANCER
     Dosage: ON 23/APR/2020, SHE RECEIVED LAST DOSE OF ATEZOLIZUMAB PRIOR TO ADVERSE EVENT.
     Route: 042
     Dates: start: 20200423
  3. PEGFILGRASTIM [Suspect]
     Active Substance: PEGFILGRASTIM
     Indication: HER2 POSITIVE BREAST CANCER
     Dosage: ON 23/APR/2020, SHE RECEIVED LAST DOSE OF TRIPEGFILGRASTIM PRIOR TO ADVERSE EVENT.
     Route: 058
     Dates: start: 20200423
  4. DENOGAN [Concomitant]
     Active Substance: PROPACETAMOL HYDROCHLORIDE
     Route: 042
     Dates: start: 20200428, end: 20200428
  5. DOCETAXEL. [Suspect]
     Active Substance: DOCETAXEL
     Indication: HER2 POSITIVE BREAST CANCER
     Dosage: ON 23/APR/2020, SHE RECEIVED LAST DOSE OF DOCETAXEL PRIOR TO ADVERSE EVENT.
     Route: 042
     Dates: start: 20200423
  6. TRASTUZUMAB. [Suspect]
     Active Substance: TRASTUZUMAB
     Indication: HER2 POSITIVE BREAST CANCER
     Dosage: ON 23/APR/2020, SHE RECEIVED LAST DOSE OF TRASTUZUMAB PRIOR TO ADVERSE EVENT.
     Route: 058
     Dates: start: 20200423
  7. PERTUZUMAB. [Suspect]
     Active Substance: PERTUZUMAB
     Indication: HER2 POSITIVE BREAST CANCER
     Dosage: ON 23/APR/2020, SHE RECEIVED LAST DOSE OF PERTUZUMAB PRIOR TO ADVERSE EVENT.
     Route: 042
     Dates: start: 20200423

REACTIONS (1)
  - Back pain [Recovered/Resolved with Sequelae]

NARRATIVE: CASE EVENT DATE: 20200428
